FAERS Safety Report 8979221 (Version 3)
Quarter: 2013Q2

REPORT INFORMATION
  Report Type: Spontaneous
  Country: FI (occurrence: FI)
  Receive Date: 20121221
  Receipt Date: 20130417
  Transmission Date: 20140414
  Serious: Yes (Other)
  Sender: FDA-Public Use
  Company Number: FI-ELI_LILLY_AND_COMPANY-FI201212004863

PATIENT
  Age: 74 Year
  Sex: Female

DRUGS (10)
  1. FORSTEO [Suspect]
     Indication: OSTEOPOROSIS
     Dosage: 20 MG, QD
     Route: 058
     Dates: start: 20120607
  2. CORTISONE [Concomitant]
     Indication: RHEUMATOID ARTHRITIS
     Dosage: 5 MG, QD
  3. PANADOL [Concomitant]
     Indication: TENDERNESS
  4. IBUMAX [Concomitant]
     Indication: PAIN
  5. TREXAN [Concomitant]
     Indication: RHEUMATOID ARTHRITIS
     Dosage: 7.5 MG, WEEKLY (1/W)
  6. ACIDOPHILIS [Concomitant]
     Indication: GASTROINTESTINAL DISORDER
  7. MICARDIS [Concomitant]
     Indication: HYPERTENSION
     Dosage: 40 MG, UNK
  8. MULTIVITAMIN [Concomitant]
     Indication: MEDICAL DIET
  9. BISOPROLOL [Concomitant]
     Indication: CARDIAC FAILURE
     Dosage: 2.5 MG, QD
     Dates: start: 20120915
  10. FUCIDIN [Concomitant]
     Indication: INFECTION
     Route: 061

REACTIONS (2)
  - Skin necrosis [Recovered/Resolved]
  - Tenderness [Not Recovered/Not Resolved]
